FAERS Safety Report 16705685 (Version 3)
Quarter: 2019Q3

REPORT INFORMATION
  Report Type: Report from Study
  Country: JP (occurrence: JP)
  Receive Date: 20190815
  Receipt Date: 20190906
  Transmission Date: 20191004
  Serious: Yes (Hospitalization)
  Sender: FDA-Public Use
  Company Number: JP-ROCHE-2366513

PATIENT
  Age: 66 Year
  Sex: Male
  Weight: 43.6 kg

DRUGS (10)
  1. ATEZOLIZUMAB. [Suspect]
     Active Substance: ATEZOLIZUMAB
     Indication: LUNG ADENOCARCINOMA
     Dosage: WITHDRAWAL PERIOD OF CYCLE 1
     Route: 041
     Dates: start: 20190712, end: 20190712
  2. DEXTROMETHORPHAN HYDROBROMIDE. [Concomitant]
     Active Substance: DEXTROMETHORPHAN HYDROBROMIDE
     Indication: ANTITUSSIVE THERAPY
     Route: 048
     Dates: start: 20190619
  3. CARBOPLATIN. [Suspect]
     Active Substance: CARBOPLATIN
     Indication: LUNG ADENOCARCINOMA
     Route: 042
     Dates: start: 20190712, end: 20190712
  4. ALIMTA [Suspect]
     Active Substance: PEMETREXED DISODIUM
     Indication: LUNG ADENOCARCINOMA
     Route: 042
     Dates: start: 20190712, end: 20190712
  5. AZULENE [Concomitant]
     Active Substance: AZULENE
     Indication: PROPHYLAXIS
     Dosage: PROPER PROPER QUANTITY
     Route: 050
     Dates: start: 20190712
  6. CALONAL [Concomitant]
     Active Substance: ACETAMINOPHEN
     Indication: TUMOUR ASSOCIATED FEVER
     Route: 048
     Dates: start: 20190711
  7. METHYCOBAL [Concomitant]
     Active Substance: METHYLCOBALAMIN
     Indication: PREMEDICATION
     Dosage: DOSE: 2A
     Route: 030
     Dates: start: 20190701
  8. SENNOSIDE [SENNOSIDE A+B] [Concomitant]
     Active Substance: SENNOSIDES A AND B
     Indication: CONSTIPATION
     Dosage: PROPER A DOSE
     Route: 048
     Dates: start: 20190714
  9. AMBROXOL HYDROCHLORIDE [Concomitant]
     Active Substance: AMBROXOL HYDROCHLORIDE
     Indication: PRODUCTIVE COUGH
     Route: 048
     Dates: start: 20190715
  10. LANSOPRAZOLE. [Concomitant]
     Active Substance: LANSOPRAZOLE
     Indication: GASTRITIS PROPHYLAXIS
     Route: 048
     Dates: start: 20190712

REACTIONS (4)
  - Febrile neutropenia [Recovered/Resolved]
  - Pneumonitis [Recovering/Resolving]
  - Platelet count decreased [Recovered/Resolved]
  - Anaemia [Recovered/Resolved]

NARRATIVE: CASE EVENT DATE: 20190718
